FAERS Safety Report 7037803-3 (Version None)
Quarter: 2010Q4

REPORT INFORMATION
  Report Type: 
  Country: None (occurrence: None)
  Receive Date: 20101011
  Receipt Date: 20100929
  Transmission Date: 20110411
  Serious: Yes (Hospitalization, Other)
  Sender: FDA-Public Use
  Company Number: US-ELI_LILLY_AND_COMPANY-US201010000847

PATIENT
  Sex: Female

DRUGS (8)
  1. FORTEO [Suspect]
     Indication: OSTEOPOROSIS
     Dosage: 20 UG, DAILY (1/D)
     Dates: start: 20100720
  2. CYTOTEC [Concomitant]
  3. SYNTHROID [Concomitant]
  4. INDERAL [Concomitant]
  5. NEXIUM [Concomitant]
  6. ZOCOR [Concomitant]
  7. VITAMIN D [Concomitant]
  8. MULTI-VITAMIN [Concomitant]

REACTIONS (6)
  - BALANCE DISORDER [None]
  - FEAR [None]
  - FEELING ABNORMAL [None]
  - GAIT DISTURBANCE [None]
  - HYPOAESTHESIA [None]
  - THALAMIC INFARCTION [None]
